FAERS Safety Report 15979800 (Version 1)
Quarter: 2019Q1

REPORT INFORMATION
  Report Type: Spontaneous
  Country: DE (occurrence: DE)
  Receive Date: 20190219
  Receipt Date: 20190219
  Transmission Date: 20190418
  Serious: Yes (Death, Life-Threatening, Hospitalization, Other)
  Sender: FDA-Public Use
  Company Number: DE-BAUSCH-BL-2019-004649

PATIENT
  Age: 17 Year
  Sex: Female

DRUGS (16)
  1. VASOPRESSIN. [Suspect]
     Active Substance: VASOPRESSIN
     Indication: CARDIOGENIC SHOCK
     Route: 065
  2. ORCIPRENALINE [Suspect]
     Active Substance: METAPROTERENOL
     Indication: CARDIOGENIC SHOCK
     Route: 065
  3. AMIODARONE [Concomitant]
     Active Substance: AMIODARONE
     Indication: CARDIOGENIC SHOCK
  4. ATROPINE. [Concomitant]
     Active Substance: ATROPINE
     Indication: CARDIOGENIC SHOCK
  5. SODIUM BICARBONATE. [Concomitant]
     Active Substance: SODIUM BICARBONATE
     Indication: PRODUCT USED FOR UNKNOWN INDICATION
  6. SULTAMICILLIN [Concomitant]
     Active Substance: SULTAMICILLIN
     Indication: PRODUCT USED FOR UNKNOWN INDICATION
  7. POTASSIUM [Concomitant]
     Active Substance: POTASSIUM
     Indication: PRODUCT USED FOR UNKNOWN INDICATION
  8. MAGNESIUM [Concomitant]
     Active Substance: MAGNESIUM
     Indication: PRODUCT USED FOR UNKNOWN INDICATION
  9. CALCIUM [Concomitant]
     Active Substance: CALCIUM
     Indication: PRODUCT USED FOR UNKNOWN INDICATION
  10. NORADRENALINE [Concomitant]
     Active Substance: NOREPINEPHRINE
     Indication: CARDIOGENIC SHOCK
  11. KETAMINE [Concomitant]
     Active Substance: KETAMINE
     Indication: PRODUCT USED FOR UNKNOWN INDICATION
  12. HYDROCORTISONE. [Suspect]
     Active Substance: HYDROCORTISONE
     Indication: CARDIOGENIC SHOCK
     Route: 065
  13. MIDAZOLAM [Concomitant]
     Active Substance: MIDAZOLAM HYDROCHLORIDE
     Indication: PRODUCT USED FOR UNKNOWN INDICATION
  14. ENOXIMONE [Concomitant]
     Active Substance: ENOXIMONE
     Indication: CARDIOGENIC SHOCK
  15. LIDOCAINE. [Concomitant]
     Active Substance: LIDOCAINE
     Indication: PRODUCT USED FOR UNKNOWN INDICATION
  16. ADRENALINE [Concomitant]
     Active Substance: EPINEPHRINE
     Indication: CARDIOGENIC SHOCK

REACTIONS (1)
  - Drug ineffective [Fatal]
